FAERS Safety Report 4885521-X (Version None)
Quarter: 2006Q1

REPORT INFORMATION
  Report Type: 
  Country: None (occurrence: None)
  Receive Date: 20060119
  Receipt Date: 20050304
  Transmission Date: 20060701
  Serious: Yes (Hospitalization, Other)
  Sender: FDA-Public Use
  Company Number: US-MERCK-0503USA00962

PATIENT
  Sex: Male

DRUGS (1)
  1. VIOXX [Suspect]
     Indication: BACK PAIN
     Route: 048
     Dates: start: 20000901, end: 20040801

REACTIONS (5)
  - ADVERSE EVENT [None]
  - CARDIAC DISORDER [None]
  - HYPERTENSION [None]
  - MYOCARDIAL INFARCTION [None]
  - NEOPLASM MALIGNANT [None]
